FAERS Safety Report 24240564 (Version 1)
Quarter: 2024Q3

REPORT INFORMATION
  Report Type: Spontaneous
  Country: US (occurrence: US)
  Receive Date: 20240822
  Receipt Date: 20240822
  Transmission Date: 20241016
  Serious: Yes (Death, Other)
  Sender: NOVITIUM PHARMA
  Company Number: US-NOVITIUMPHARMA-2024USNVP01625

PATIENT
  Age: 4 Year
  Sex: Male

DRUGS (9)
  1. DEXAMETHASONE [Suspect]
     Active Substance: DEXAMETHASONE
     Indication: T-cell type acute leukaemia
  2. VINCRISTINE [Concomitant]
     Active Substance: VINCRISTINE
     Indication: T-cell type acute leukaemia
  3. DAUNORUBICIN [Concomitant]
     Active Substance: DAUNORUBICIN
     Indication: T-cell type acute leukaemia
  4. METHOTREXATE [Concomitant]
     Active Substance: METHOTREXATE
     Indication: T-cell type acute leukaemia
  5. PEGASPARGASE [Concomitant]
     Active Substance: PEGASPARGASE
     Indication: T-cell type acute leukaemia
  6. NELARABINE [Concomitant]
     Active Substance: NELARABINE
     Indication: T-cell type acute leukaemia
  7. CYCLOPHOSPHAMIDE [Concomitant]
     Active Substance: CYCLOPHOSPHAMIDE
     Indication: T-cell type acute leukaemia
  8. CYTARABINE [Concomitant]
     Active Substance: CYTARABINE
     Indication: T-cell type acute leukaemia
  9. MERCAPTOPURINE [Concomitant]
     Active Substance: MERCAPTOPURINE
     Indication: T-cell type acute leukaemia

REACTIONS (11)
  - Pseudomonal bacteraemia [Fatal]
  - Stenotrophomonas infection [Fatal]
  - Aspergillus infection [Fatal]
  - Scedosporium infection [Fatal]
  - COVID-19 [Fatal]
  - Pneumocystis jirovecii pneumonia [Fatal]
  - Lymphopenia [Fatal]
  - Fibrinous bronchitis [Fatal]
  - Pulmonary haemorrhage [Fatal]
  - Septic shock [Fatal]
  - Respiratory failure [Fatal]
